FAERS Safety Report 23441478 (Version 6)
Quarter: 2024Q3

REPORT INFORMATION
  Report Type: Spontaneous
  Country: US (occurrence: US)
  Receive Date: 20240125
  Receipt Date: 20240703
  Transmission Date: 20241017
  Serious: Yes (Other)
  Sender: CSL BEHRING
  Company Number: US-BEH-2024167706

PATIENT
  Age: 25 Year
  Sex: Male

DRUGS (8)
  1. IDELVION [Suspect]
     Active Substance: COAGULATION FACTOR IX RECOMBINANT HUMAN
     Indication: Factor IX deficiency
     Dosage: 3500 (3150-3850) INTERNATIONAL UNIT, QW
     Route: 042
     Dates: start: 202311
  2. IDELVION [Suspect]
     Active Substance: COAGULATION FACTOR IX RECOMBINANT HUMAN
     Indication: Factor IX deficiency
     Dosage: 3500 (3150-3850) INTERNATIONAL UNIT, QW
     Route: 042
     Dates: start: 202311
  3. IDELVION [Suspect]
     Active Substance: COAGULATION FACTOR IX RECOMBINANT HUMAN
     Dosage: 3500 (3150-3850) INTERNATIONAL UNIT, Q24H PRN
     Route: 042
     Dates: start: 202311
  4. IDELVION [Suspect]
     Active Substance: COAGULATION FACTOR IX RECOMBINANT HUMAN
     Dosage: 3500 (3150-3850) INTERNATIONAL UNIT, Q24H PRN
     Route: 042
     Dates: start: 202311
  5. IDELVION [Suspect]
     Active Substance: COAGULATION FACTOR IX RECOMBINANT HUMAN
     Indication: Factor IX deficiency
     Dosage: 3500 (3150-3850) IU,  QW
     Route: 042
     Dates: start: 202311
  6. IDELVION [Suspect]
     Active Substance: COAGULATION FACTOR IX RECOMBINANT HUMAN
     Indication: Factor IX deficiency
     Dosage: 3500 (3150-3850) IU,  QW
     Route: 042
     Dates: start: 202311
  7. IDELVION [Suspect]
     Active Substance: COAGULATION FACTOR IX RECOMBINANT HUMAN
     Dosage: 3500 (3150-3850) IU, Q24 HOURS PRN
     Route: 042
     Dates: start: 202311
  8. IDELVION [Suspect]
     Active Substance: COAGULATION FACTOR IX RECOMBINANT HUMAN
     Dosage: 3500 (3150-3850) IU, Q24 HOURS PRN
     Route: 042
     Dates: start: 202311

REACTIONS (7)
  - Haemarthrosis [Recovered/Resolved]
  - Muscle haemorrhage [Recovered/Resolved]
  - Fall [Unknown]
  - Joint injury [Unknown]
  - Haemarthrosis [Not Recovered/Not Resolved]
  - Joint injury [Unknown]
  - Haemarthrosis [Recovered/Resolved]

NARRATIVE: CASE EVENT DATE: 20240101
